FAERS Safety Report 24646271 (Version 2)
Quarter: 2024Q4

REPORT INFORMATION
  Report Type: Spontaneous
  Country: JP (occurrence: JP)
  Receive Date: 20241121
  Receipt Date: 20241231
  Transmission Date: 20250115
  Serious: Yes (Other)
  Sender: REGENERON
  Company Number: JP-BAYER-2024A165313

PATIENT
  Age: 65 Year
  Sex: Female

DRUGS (3)
  1. EYLEA [Suspect]
     Active Substance: AFLIBERCEPT
     Indication: Diabetic retinal oedema
     Dosage: 2 MG, ONCE, SOLUTION FOR INJECTION, 40 MG/ML
     Route: 031
  2. EYLEA [Suspect]
     Active Substance: AFLIBERCEPT
     Dosage: 2 MG, ONCE, SOLUTION FOR INJECTION, 40 MG/ML
     Route: 031
     Dates: start: 20240430, end: 20240430
  3. EYLEA [Suspect]
     Active Substance: AFLIBERCEPT
     Dosage: 2 MG, ONCE, SOLUTION FOR INJECTION, 40 MG/ML
     Route: 031
     Dates: start: 20240604, end: 20240604

REACTIONS (3)
  - Keratic precipitates [Recovered/Resolved]
  - Vitreous opacities [Recovered/Resolved]
  - Eye inflammation [Recovered/Resolved]

NARRATIVE: CASE EVENT DATE: 20200101
